FAERS Safety Report 4358918-4 (Version None)
Quarter: 2004Q2

REPORT INFORMATION
  Report Type: 
  Country: None (occurrence: None)
  Receive Date: 20040512
  Receipt Date: 20040504
  Transmission Date: 20050107
  Serious: Yes (Death)
  Sender: FDA-Public Use
  Company Number: 2004-0006898

PATIENT
  Age: 57 Year
  Sex: Male

DRUGS (3)
  1. HEPSERA [Suspect]
     Indication: HEPATITIS B
     Dosage: 10 MG, 1 IN 1 D, ORAL
     Route: 048
     Dates: start: 20040201, end: 20040201
  2. LAMIVUDINE (LAMIVUDINE) [Concomitant]
  3. PRAVASTATIN [Concomitant]

REACTIONS (1)
  - HEPATIC FAILURE [None]
